FAERS Safety Report 10793752 (Version 1)
Quarter: 2015Q1

REPORT INFORMATION
  Report Type: Spontaneous
  Country: DE (occurrence: DE)
  Receive Date: 20150213
  Receipt Date: 20150213
  Transmission Date: 20150721
  Serious: Yes (Other)
  Sender: FDA-Public Use
  Company Number: DE-TEVA-539274GER

PATIENT
  Age: 54 Year
  Sex: Female

DRUGS (4)
  1. CILENGITIDE [Suspect]
     Active Substance: CILENGITIDE
     Indication: NON-SMALL CELL LUNG CANCER METASTATIC
     Dosage: 2 CYCLES
     Route: 065
  2. CETUXIMAB [Suspect]
     Active Substance: CETUXIMAB
     Indication: NON-SMALL CELL LUNG CANCER METASTATIC
     Dosage: 2 CYCLES
     Route: 065
  3. CISPLATIN. [Suspect]
     Active Substance: CISPLATIN
     Indication: NON-SMALL CELL LUNG CANCER METASTATIC
     Dosage: 2 CYCLES
     Route: 065
  4. GEMCITABINE [Suspect]
     Active Substance: GEMCITABINE\GEMCITABINE HYDROCHLORIDE
     Indication: NON-SMALL CELL LUNG CANCER METASTATIC
     Dosage: 2 CYCLES
     Route: 065

REACTIONS (2)
  - Thrombocytosis [Unknown]
  - Aortic thrombosis [Recovered/Resolved]
